FAERS Safety Report 22057319 (Version 1)
Quarter: 2023Q1

REPORT INFORMATION
  Report Type: Spontaneous
  Country: GB (occurrence: GB)
  Receive Date: 20230303
  Receipt Date: 20230303
  Transmission Date: 20230418
  Serious: Yes (Other)
  Sender: FDA-Public Use
  Company Number: GB-Shilpa Medicare Limited-SML-GB-2023-00243

PATIENT
  Age: 37 Year
  Sex: Male

DRUGS (3)
  1. IMATINIB [Suspect]
     Active Substance: IMATINIB
     Indication: Giant cell tumour of tendon sheath
     Dosage: 400MG/DAY
     Route: 065
     Dates: start: 201908
  2. IMATINIB [Suspect]
     Active Substance: IMATINIB
     Dosage: 100MG/DAY
     Route: 065
  3. DOMPERIDONE [Concomitant]
     Active Substance: DOMPERIDONE
     Indication: Nausea
     Route: 065

REACTIONS (6)
  - Neutropenia [Recovered/Resolved]
  - Off label use [Unknown]
  - Fatigue [Unknown]
  - Nausea [Unknown]
  - Decreased appetite [Unknown]
  - Blood bilirubin increased [Unknown]
